FAERS Safety Report 6788161-0 (Version None)
Quarter: 2010Q2

REPORT INFORMATION
  Report Type: 
  Country: None (occurrence: None)
  Receive Date: 20100623
  Receipt Date: 20080125
  Transmission Date: 20101027
  Serious: No
  Sender: FDA-Public Use
  Company Number: US-PFIZER INC-2008008178

PATIENT
  Sex: Female
  Weight: 65.909 kg

DRUGS (4)
  1. AROMASIN [Suspect]
     Indication: BREAST CANCER
     Dates: start: 20071129
  2. VITAMINS [Concomitant]
  3. MINERALS NOS [Concomitant]
  4. ANASTROZOLE [Concomitant]

REACTIONS (3)
  - ALOPECIA [None]
  - ARTHRALGIA [None]
  - NEUROPATHY PERIPHERAL [None]
